FAERS Safety Report 12925585 (Version 1)
Quarter: 2016Q4

REPORT INFORMATION
  Report Type: Spontaneous
  Country: AU (occurrence: AU)
  Receive Date: 20161109
  Receipt Date: 20161109
  Transmission Date: 20170207
  Serious: Yes (Other)
  Sender: FDA-Public Use
  Company Number: AU-SA-2016SA202199

PATIENT
  Age: 63 Year
  Sex: Male

DRUGS (1)
  1. IRBESARTAN. [Suspect]
     Active Substance: IRBESARTAN
     Indication: BLOOD PRESSURE INCREASED
     Route: 065

REACTIONS (10)
  - Palpitations [Recovered/Resolved]
  - Orthopnoea [Unknown]
  - Ejection fraction abnormal [Recovered/Resolved]
  - Left ventricular dilatation [Unknown]
  - Atrial fibrillation [Unknown]
  - Dyspnoea paroxysmal nocturnal [Unknown]
  - Dilatation atrial [Unknown]
  - Tachycardia induced cardiomyopathy [Unknown]
  - Dyspnoea [Unknown]
  - Ventricular tachycardia [Unknown]
